FAERS Safety Report 18792252 (Version 2)
Quarter: 2021Q1

REPORT INFORMATION
  Report Type: Report from Study
  Country: US (occurrence: US)
  Receive Date: 20210127
  Receipt Date: 20210202
  Transmission Date: 20210419
  Serious: Yes (Hospitalization)
  Sender: FDA-Public Use
  Company Number: US-ROCHE-2756296

PATIENT
  Age: 74 Year
  Sex: Male
  Weight: 64.9 kg

DRUGS (3)
  1. VENETOCLAX. [Suspect]
     Active Substance: VENETOCLAX
     Indication: B-CELL LYMPHOMA
     Dosage: DATE OF LAST DOSE: 08/SEP/2018, LAST CYCLE NO: C6,
     Route: 065
     Dates: start: 20180412
  2. BENDAMUSTINE [Suspect]
     Active Substance: BENDAMUSTINE
     Indication: B-CELL LYMPHOMA
     Dosage: DATE OF LAST DOSE: 31/AUG/2018, 195 MG LAST CYCLE NO: C6, CYCLES 1?6
     Route: 065
     Dates: start: 20180412
  3. OBINUTUZUMAB. [Suspect]
     Active Substance: OBINUTUZUMAB
     Indication: B-CELL LYMPHOMA
     Dosage: DATE OF LAST DOSE: 12/SEP/2019, 1000 MG LAST CYCLE NO: MC6,
     Route: 042
     Dates: start: 20180412

REACTIONS (1)
  - Polyomavirus-associated nephropathy [Recovered/Resolved with Sequelae]

NARRATIVE: CASE EVENT DATE: 20210108
